FAERS Safety Report 20156122 (Version 5)
Quarter: 2022Q2

REPORT INFORMATION
  Report Type: Spontaneous
  Country: US (occurrence: US)
  Receive Date: 20211207
  Receipt Date: 20220629
  Transmission Date: 20220721
  Serious: No
  Sender: FDA-Public Use
  Company Number: US-PFIZER INC-202101190466

PATIENT
  Age: 55 Year
  Sex: Female

DRUGS (2)
  1. XELJANZ XR [Suspect]
     Active Substance: TOFACITINIB CITRATE
     Indication: Rheumatoid arthritis
     Dosage: 11 MG, DAILY
     Route: 048
     Dates: start: 202108, end: 202205
  2. AUGMENTIN [Concomitant]
     Active Substance: AMOXICILLIN\CLAVULANATE POTASSIUM
     Dosage: UNK

REACTIONS (25)
  - Product dose omission issue [Unknown]
  - Cough [Unknown]
  - Nasal congestion [Unknown]
  - Nausea [Unknown]
  - Dyspnoea [Unknown]
  - Illness [Unknown]
  - Wheezing [Unknown]
  - Sensory loss [Unknown]
  - Fall [Unknown]
  - Finger deformity [Unknown]
  - Gingivitis [Unknown]
  - Pain in extremity [Unknown]
  - Neck pain [Unknown]
  - Peripheral swelling [Unknown]
  - Melatonin deficiency [Unknown]
  - Catastrophic reaction [Unknown]
  - Photosensitivity reaction [Unknown]
  - Pre-existing disease [Unknown]
  - Upper respiratory tract infection [Unknown]
  - Sinusitis [Unknown]
  - Respiratory symptom [Recovered/Resolved]
  - Facial pain [Recovered/Resolved]
  - Ear pain [Recovered/Resolved]
  - Dyspnoea [Recovered/Resolved]
  - Upper respiratory tract infection [Unknown]

NARRATIVE: CASE EVENT DATE: 20210101
